FAERS Safety Report 20994966 (Version 1)
Quarter: 2022Q2

REPORT INFORMATION
  Report Type: Spontaneous
  Country: US (occurrence: US)
  Receive Date: 20220622
  Receipt Date: 20220622
  Transmission Date: 20220720
  Serious: No
  Sender: FDA-Public Use
  Company Number: US-SEATTLE GENETICS-2022SGN03727

PATIENT
  Sex: Female

DRUGS (2)
  1. TIVDAK [Suspect]
     Active Substance: TISOTUMAB VEDOTIN-TFTV
     Indication: Cervix carcinoma
     Dosage: UNK
     Route: 065
     Dates: start: 202201
  2. GLUTAMINE [LEVOGLUTAMIDE] [Concomitant]
     Indication: Chemotherapy side effect prophylaxis
     Dosage: UNK UNK, QD
     Route: 065

REACTIONS (6)
  - Transfusion [Unknown]
  - Anaemia [Recovering/Resolving]
  - Gastrointestinal pain [Unknown]
  - Dry eye [Recovering/Resolving]
  - Abdominal pain upper [Unknown]
  - Nausea [Unknown]
